FAERS Safety Report 6571333-8 (Version None)
Quarter: 2010Q1

REPORT INFORMATION
  Report Type: 
  Country: None (occurrence: None)
  Receive Date: 20100205
  Receipt Date: 20100128
  Transmission Date: 20100710
  Serious: Yes (Hospitalization)
  Sender: FDA-Public Use
  Company Number: FR-BIOGENIDEC-2009BI026993

PATIENT
  Age: 47 Year
  Sex: Male

DRUGS (10)
  1. TYSABRI [Suspect]
     Indication: MULTIPLE SCLEROSIS
     Route: 042
     Dates: start: 20071122
  2. PARACETAMOL [Concomitant]
     Indication: MULTIPLE SCLEROSIS
     Route: 048
  3. LIORESAL [Concomitant]
     Indication: MULTIPLE SCLEROSIS
     Route: 048
     Dates: start: 20080101
  4. LIORESAL [Concomitant]
     Indication: MUSCLE SPASTICITY
     Route: 048
     Dates: start: 20080101
  5. PAROXETINE HCL [Concomitant]
     Indication: MULTIPLE SCLEROSIS
     Route: 048
     Dates: start: 20090101
  6. PAROXETINE HCL [Concomitant]
     Indication: DEPRESSION
     Route: 048
     Dates: start: 20090101
  7. TROSPIUM CHLORIDE [Concomitant]
     Indication: MULTIPLE SCLEROSIS
     Route: 048
     Dates: start: 20090401
  8. DITROPAN [Concomitant]
     Indication: MULTIPLE SCLEROSIS
     Route: 048
     Dates: start: 20090401
  9. 3,4 DIAMINOPYRIDINE [Concomitant]
     Indication: ASTHENIA
     Route: 048
     Dates: start: 20080801
  10. BOTULINUM TOXIN [Concomitant]
     Dates: start: 20090805, end: 20090805

REACTIONS (3)
  - ESCHERICHIA INFECTION [None]
  - PYELONEPHRITIS [None]
  - URINARY TRACT INFECTION [None]
